FAERS Safety Report 7014398-1 (Version None)
Quarter: 2010Q3

REPORT INFORMATION
  Report Type: 
  Country: None (occurrence: None)
  Receive Date: 20100927
  Receipt Date: 20100915
  Transmission Date: 20110219
  Serious: Yes (Hospitalization)
  Sender: FDA-Public Use
  Company Number: US-ELI_LILLY_AND_COMPANY-US201009004046

PATIENT
  Sex: Female
  Weight: 76.19 kg

DRUGS (5)
  1. BYETTA [Suspect]
     Indication: TYPE 2 DIABETES MELLITUS
     Dosage: 5 UG, 2/D
     Route: 058
     Dates: start: 20090101
  2. BYETTA [Suspect]
     Dosage: 10 UG, 2/D
     Route: 058
     Dates: end: 20100601
  3. JANUVIA [Concomitant]
     Indication: TYPE 2 DIABETES MELLITUS
     Dosage: 100 MG, DAILY (1/D)
  4. SINGULAIR [Concomitant]
     Indication: ASTHMA
     Dosage: 10 MG, DAILY (1/D)
  5. SYNTHROID [Concomitant]
     Indication: THYROID DISORDER
     Dosage: 250 MG, DAILY (1/D)

REACTIONS (5)
  - CHOLELITHIASIS [None]
  - DIZZINESS [None]
  - NAUSEA [None]
  - NON-CARDIAC CHEST PAIN [None]
  - VOMITING [None]
